FAERS Safety Report 9912630 (Version 1)
Quarter: 2014Q1

REPORT INFORMATION
  Report Type: Spontaneous
  Country: CN (occurrence: CN)
  Receive Date: 20140220
  Receipt Date: 20140220
  Transmission Date: 20141002
  Serious: Yes (Life-Threatening)
  Sender: FDA-Public Use
  Company Number: CN-ROCHE-1347079

PATIENT
  Age: 73 Year
  Sex: Male

DRUGS (1)
  1. TAMIFLU [Suspect]
     Indication: AVIAN INFLUENZA
     Route: 048
     Dates: start: 20140130

REACTIONS (7)
  - White blood cell count decreased [Not Recovered/Not Resolved]
  - Lung infection [Not Recovered/Not Resolved]
  - Respiratory failure [Not Recovered/Not Resolved]
  - Septic shock [Not Recovered/Not Resolved]
  - Stress ulcer [Not Recovered/Not Resolved]
  - Pyrexia [Not Recovered/Not Resolved]
  - Anoxia [Not Recovered/Not Resolved]
